FAERS Safety Report 11419694 (Version 1)
Quarter: 2015Q3

REPORT INFORMATION
  Report Type: Report from Study
  Country: IN (occurrence: IN)
  Receive Date: 20150826
  Receipt Date: 20150826
  Transmission Date: 20151125
  Serious: Yes (Hospitalization)
  Sender: FDA-Public Use
  Company Number: IN-UNITED THERAPEUTICS LTD.-UTC-006088

PATIENT
  Age: 22 Year
  Sex: Male
  Weight: 44 kg

DRUGS (9)
  1. LANOXIN [Concomitant]
     Active Substance: DIGOXIN
     Route: 048
     Dates: start: 20100711
  2. UT-15C SR(SUSTAINED-RELEASE TABLET)(TREPROSTINIL DIETHANOLAMINE) [Suspect]
     Active Substance: TREPROSTINIL
     Indication: PULMONARY ARTERIAL HYPERTENSION
     Route: 048
     Dates: start: 20100518
  3. GELUSIL                            /00066101/ [Concomitant]
  4. LASILACTONE [Concomitant]
     Active Substance: FUROSEMIDE\SPIRONOLACTONE
     Route: 048
     Dates: start: 20100303, end: 20110403
  5. UT-15C SR(SUSTAINED-RELEASE TABLET)(TREPROSTINIL DIETHANOLAMINE) [Suspect]
     Active Substance: TREPROSTINIL
     Dosage: EVENING DOSE
     Route: 048
     Dates: start: 20110403
  6. DOLO-650 [Concomitant]
     Route: 048
     Dates: start: 20110403
  7. UT-15C SR(SUSTAINED-RELEASE TABLET)(TREPROSTINIL DIETHANOLAMINE) [Suspect]
     Active Substance: TREPROSTINIL
     Route: 048
     Dates: start: 20110202, end: 20110402
  8. AMIFRU [Concomitant]
     Route: 048
     Dates: start: 20110403
  9. RABELOC [Concomitant]
     Route: 048
     Dates: start: 20110403

REACTIONS (2)
  - Gastritis [Recovered/Resolved]
  - Headache [Recovered/Resolved]

NARRATIVE: CASE EVENT DATE: 20110402
